FAERS Safety Report 10028779 (Version 2)
Quarter: 2014Q2

REPORT INFORMATION
  Report Type: Spontaneous
  Country: US (occurrence: US)
  Receive Date: 20140321
  Receipt Date: 20140407
  Transmission Date: 20141212
  Serious: No
  Sender: FDA-Public Use
  Company Number: US-GILEAD-2014-0097339

PATIENT
  Sex: Male

DRUGS (5)
  1. LETAIRIS [Suspect]
     Indication: PRODUCT USED FOR UNKNOWN INDICATION
     Dosage: 10 MG, QD
     Route: 065
     Dates: start: 20120602
  2. LETAIRIS [Suspect]
     Dates: start: 20120601
  3. VENTAVIS [Concomitant]
  4. WARFARIN [Concomitant]
  5. REVATIO [Concomitant]

REACTIONS (1)
  - Cough [Unknown]
